FAERS Safety Report 10226290 (Version 1)
Quarter: 2014Q2

REPORT INFORMATION
  Report Type: Spontaneous
  Country: FR (occurrence: FR)
  Receive Date: 20140609
  Receipt Date: 20140609
  Transmission Date: 20141212
  Serious: Yes (Hospitalization, Disabling, Other)
  Sender: FDA-Public Use
  Company Number: FR-ABBVIE-14K-056-1243796-00

PATIENT
  Age: 46 Year
  Sex: Male
  Weight: 100 kg

DRUGS (20)
  1. KALETRA [Suspect]
     Indication: PRODUCT USED FOR UNKNOWN INDICATION
     Route: 048
     Dates: start: 201305, end: 201307
  2. NORVIR [Interacting]
     Indication: PRODUCT USED FOR UNKNOWN INDICATION
     Route: 048
     Dates: start: 201101, end: 201206
  3. NORVIR [Interacting]
     Dates: start: 201305
  4. NORVIR [Interacting]
     Dates: start: 201307, end: 201308
  5. NORVIR [Interacting]
     Dates: start: 201308
  6. SERETIDE [Interacting]
     Indication: PRODUCT USED FOR UNKNOWN INDICATION
     Dosage: DOSE INCREASED AS NEEDED
     Route: 055
     Dates: end: 20140407
  7. PREZISTA [Interacting]
     Indication: PRODUCT USED FOR UNKNOWN INDICATION
     Route: 048
     Dates: start: 201101, end: 201206
  8. PREZISTA [Interacting]
     Dates: start: 201305
  9. PREZISTA [Interacting]
     Dates: start: 201307, end: 201308
  10. PREZISTA [Interacting]
     Dates: start: 201308
  11. DOLUTEGRAVIR [Interacting]
     Indication: PRODUCT USED FOR UNKNOWN INDICATION
     Dates: start: 201307, end: 201308
  12. CELSENTRI [Concomitant]
     Indication: PRODUCT USED FOR UNKNOWN INDICATION
     Dates: start: 201305, end: 201307
  13. CELSENTRI [Concomitant]
     Dates: start: 201307, end: 201308
  14. CELSENTRI [Concomitant]
     Dates: start: 201308
  15. FUZEON [Concomitant]
     Indication: PRODUCT USED FOR UNKNOWN INDICATION
     Dates: start: 201305, end: 201307
  16. FUZEON [Concomitant]
     Dates: start: 201308
  17. SPIRIVA [Concomitant]
     Indication: PRODUCT USED FOR UNKNOWN INDICATION
     Dates: start: 20140405
  18. TRUVADA [Concomitant]
     Indication: PRODUCT USED FOR UNKNOWN INDICATION
     Dates: start: 201101, end: 201206
  19. INTELENCE [Concomitant]
     Indication: PRODUCT USED FOR UNKNOWN INDICATION
     Dates: start: 201206, end: 201305
  20. ISENTRESS [Concomitant]
     Indication: PRODUCT USED FOR UNKNOWN INDICATION
     Dates: start: 201206, end: 201305

REACTIONS (15)
  - Cushing^s syndrome [Not Recovered/Not Resolved]
  - Blood cortisol decreased [Not Recovered/Not Resolved]
  - General physical health deterioration [Unknown]
  - Pulmonary embolism [Unknown]
  - Adrenal insufficiency [Unknown]
  - Amyotrophy [Unknown]
  - Weight increased [Recovered/Resolved]
  - Hirsutism [Unknown]
  - Depressed mood [Unknown]
  - Irritability [Unknown]
  - Skin striae [Unknown]
  - Weight increased [Unknown]
  - Asthenia [Unknown]
  - Rash maculovesicular [Unknown]
  - Drug interaction [Unknown]
